FAERS Safety Report 5625916-X (Version None)
Quarter: 2008Q1

REPORT INFORMATION
  Report Type: 
  Country: None (occurrence: None)
  Receive Date: 20080214
  Receipt Date: 20080201
  Transmission Date: 20080703
  Serious: Yes (Other)
  Sender: FDA-Public Use
  Company Number: US-AMGEN-QUU262651

PATIENT
  Sex: Female
  Weight: 14.8 kg

DRUGS (1)
  1. ENBREL [Suspect]
     Indication: DRUG USE FOR UNKNOWN INDICATION
     Dates: start: 20080128, end: 20080128

REACTIONS (4)
  - ACCIDENTAL NEEDLE STICK [None]
  - ACCIDENTAL OVERDOSE [None]
  - SCRATCH [None]
  - TENDERNESS [None]
